FAERS Safety Report 6668887-X (Version None)
Quarter: 2010Q2

REPORT INFORMATION
  Report Type: 
  Country: None (occurrence: None)
  Receive Date: 20100406
  Receipt Date: 20100330
  Transmission Date: 20101027
  Serious: Yes (Death, Life-Threatening, Hospitalization, Disabling, Other)
  Sender: FDA-Public Use
  Company Number: GB-SANOFI-AVENTIS-2010SA013630

PATIENT
  Age: 78 Year
  Sex: Male
  Weight: 74.1 kg

DRUGS (7)
  1. AFLIBERCEPT [Suspect]
     Route: 042
     Dates: start: 20100129, end: 20100129
  2. DOCETAXEL [Suspect]
     Route: 042
     Dates: start: 20100129, end: 20100129
  3. PREDNISOLONE [Suspect]
     Route: 048
     Dates: start: 20100129, end: 20100130
  4. ZOLADEX [Concomitant]
     Indication: HORMONE THERAPY
     Dates: start: 20070918
  5. ASPIRIN [Concomitant]
     Dates: start: 20011204
  6. SIMVASTATIN [Concomitant]
     Dates: start: 20040115
  7. NEBIVOLOL HCL [Concomitant]
     Dates: start: 20020225

REACTIONS (1)
  - HAEMORRHAGIC STROKE [None]
